FAERS Safety Report 17856517 (Version 1)
Quarter: 2020Q2

REPORT INFORMATION
  Report Type: Spontaneous
  Country: DE (occurrence: DE)
  Receive Date: 20200603
  Receipt Date: 20200603
  Transmission Date: 20200714
  Serious: Yes (Other)
  Sender: FDA-Public Use
  Company Number: DE-JNJFOC-20200531294

PATIENT
  Age: 67 Year
  Sex: Female

DRUGS (1)
  1. VERMOX [Suspect]
     Active Substance: MEBENDAZOLE
     Indication: PRODUCT USED FOR UNKNOWN INDICATION
     Route: 048

REACTIONS (1)
  - Helminthic infection [Unknown]
